FAERS Safety Report 8480142-4 (Version None)
Quarter: 2012Q2

REPORT INFORMATION
  Report Type: 
  Country: None (occurrence: None)
  Receive Date: 20120629
  Receipt Date: 20120620
  Transmission Date: 20120825
  Serious: Yes (Other)
  Sender: FDA-Public Use
  Company Number: US-ROCHE-GNE322387

PATIENT
  Sex: Female
  Weight: 102.15 kg

DRUGS (27)
  1. FISH OIL [Concomitant]
     Indication: ASTHMA
  2. SINGULAIR [Concomitant]
     Indication: ASTHMA
     Dosage: UNK
     Route: 048
     Dates: start: 20090101
  3. VITAMIN AND MINERAL PRENATAL SUPPLEMENT W/ FOLIC ACID CAP [Concomitant]
     Indication: PREGNANCY
     Dosage: UNK
  4. DOCUSATE SODIUM/SENNOSIDES [Concomitant]
     Indication: CONSTIPATION
     Route: 048
     Dates: start: 20100101
  5. ALVESCO [Concomitant]
     Indication: ASTHMA
  6. OMALIZUMAB [Suspect]
     Indication: ASTHMA
     Route: 058
     Dates: start: 20110408, end: 20110722
  7. OMALIZUMAB [Suspect]
     Route: 058
     Dates: start: 20110505
  8. PULMICORT NEBULIZER [Concomitant]
     Indication: ASTHMA
     Dosage: UNK
  9. ZYRTEC [Concomitant]
     Indication: HYPERSENSITIVITY
     Route: 048
     Dates: start: 20090101
  10. METHYLDOPA [Concomitant]
     Indication: HYPERTENSION
     Dosage: O
     Route: 048
     Dates: start: 20110601
  11. ZOFRAN [Concomitant]
     Indication: NAUSEA
     Dosage: UNK
  12. OMALIZUMAB [Suspect]
     Route: 058
     Dates: start: 20110524
  13. ALBUTEROL [Concomitant]
     Indication: ASTHMA
     Dosage: UNK
  14. PROBIOTIC (UNK INGREDIENTS) [Concomitant]
     Indication: ASTHMA
  15. PHENERGAN HCL [Concomitant]
     Indication: NAUSEA
     Dosage: UNK
  16. ACETAMINOPHEN [Concomitant]
     Indication: HEADACHE
     Route: 048
     Dates: start: 20110901
  17. CELEXA [Concomitant]
     Indication: DEPRESSION
  18. VITAMIN B-12 [Concomitant]
     Route: 048
     Dates: start: 20110923
  19. NYSTATIN [Concomitant]
     Route: 061
     Dates: start: 20110923
  20. OMALIZUMAB [Suspect]
     Route: 058
     Dates: start: 20110607
  21. VITAMIN D [Concomitant]
     Indication: ASTHMA
  22. OMALIZUMAB [Suspect]
     Route: 058
     Dates: start: 20110421
  23. HYDROCHLOROTHIAZIDE [Concomitant]
     Indication: HYPERTENSION
  24. OMALIZUMAB [Suspect]
     Route: 058
     Dates: start: 20110622
  25. PULMICORT [Concomitant]
     Indication: ASTHMA
     Dosage: UNK
  26. XOPENEX [Concomitant]
     Indication: ASTHMA
     Dosage: UNK
     Dates: start: 20090101
  27. SYMBICORT [Concomitant]
     Indication: ASTHMA

REACTIONS (3)
  - VENTRICULAR EXTRASYSTOLES [None]
  - ABORTION SPONTANEOUS [None]
  - MATERNAL EXPOSURE DURING PREGNANCY [None]
